FAERS Safety Report 4735235-1 (Version None)
Quarter: 2005Q3

REPORT INFORMATION
  Report Type: 
  Country: None (occurrence: None)
  Receive Date: 20050805
  Receipt Date: 20050713
  Transmission Date: 20060218
  Serious: Yes (Hospitalization, Other)
  Sender: FDA-Public Use
  Company Number: JP-BOEHRINGER INGELHEIM PHARMACEUTICALS, INC.-2005-BP-11876YA

PATIENT
  Sex: Male

DRUGS (3)
  1. HARNAL [Suspect]
     Indication: BENIGN PROSTATIC HYPERPLASIA
     Route: 048
     Dates: start: 20000204, end: 20050716
  2. FELBINAC [Concomitant]
     Indication: BACK PAIN
     Route: 062
     Dates: start: 20000501
  3. KETOPROFEN [Concomitant]
     Indication: BACK PAIN
     Route: 062
     Dates: start: 20000501

REACTIONS (5)
  - COLD SWEAT [None]
  - DIZZINESS [None]
  - FALL [None]
  - FEELING ABNORMAL [None]
  - FEMORAL NECK FRACTURE [None]
